FAERS Safety Report 24555928 (Version 1)
Quarter: 2024Q4

REPORT INFORMATION
  Report Type: Spontaneous
  Country: FR (occurrence: FR)
  Receive Date: 20241028
  Receipt Date: 20241028
  Transmission Date: 20250115
  Serious: Yes (Hospitalization)
  Sender: FRESENIUS KABI
  Company Number: None

PATIENT
  Age: 47 Year
  Sex: Female

DRUGS (3)
  1. PIPERACILLIN SODIUM\TAZOBACTAM SODIUM [Suspect]
     Active Substance: PIPERACILLIN SODIUM\TAZOBACTAM SODIUM
     Indication: Sepsis
     Dosage: 4 G/2 TIMES PER DAY?FORM OF ADMIN: 1FP
     Route: 042
     Dates: start: 20240802, end: 20240809
  2. CYCLOPHOSPHAMIDE [Suspect]
     Active Substance: CYCLOPHOSPHAMIDE
     Indication: Polychondritis
     Dosage: 0.6 G/M2?1FP
     Route: 042
     Dates: start: 20240613
  3. MESNA [Suspect]
     Active Substance: MESNA
     Indication: Polychondritis
     Dosage: DOSE UNKNOWN?1FP
     Route: 042
     Dates: start: 20240613

REACTIONS (2)
  - Sepsis [Recovering/Resolving]
  - Agranulocytosis [Recovering/Resolving]

NARRATIVE: CASE EVENT DATE: 20240802
